FAERS Safety Report 22058743 (Version 2)
Quarter: 2023Q4

REPORT INFORMATION
  Report Type: Other
  Country: RU (occurrence: None)
  Receive Date: 20230303
  Receipt Date: 20231201
  Transmission Date: 20240110
  Serious: Yes (Death)
  Sender: FDA-Public Use
  Company Number: RU-ROCHE-3180564

PATIENT

DRUGS (2)
  1. RITUXIMAB [Suspect]
     Active Substance: RITUXIMAB
     Indication: Lupus nephritis
     Dosage: EVERY WEEK (2-4 INFUSIONS) WITH REPEATED COURSES EVERY 6-12 MONTHS
     Route: 042
  2. RITUXIMAB [Suspect]
     Active Substance: RITUXIMAB
     Indication: Systemic lupus erythematosus

REACTIONS (2)
  - Aspergillus infection [Fatal]
  - Off label use [Fatal]
